FAERS Safety Report 23021362 (Version 2)
Quarter: 2024Q1

REPORT INFORMATION
  Report Type: Spontaneous
  Country: FR (occurrence: FR)
  Receive Date: 20231003
  Receipt Date: 20240105
  Transmission Date: 20240410
  Serious: Yes (Other)
  Sender: FDA-Public Use
  Company Number: None

PATIENT
  Age: 58 Year
  Sex: Male
  Weight: 73 kg

DRUGS (9)
  1. VINCRISTINE SULFATE [Suspect]
     Active Substance: VINCRISTINE SULFATE
     Indication: Astrocytoma
     Dosage: 2 MG
     Route: 042
     Dates: start: 20230809, end: 20230809
  2. LOMUSTINE [Suspect]
     Active Substance: LOMUSTINE
     Indication: Astrocytoma
     Dosage: UNK
     Route: 048
     Dates: start: 20230802, end: 20230802
  3. BACTRIM [Suspect]
     Active Substance: SULFAMETHOXAZOLE\TRIMETHOPRIM
     Indication: Chemotherapy side effect prophylaxis
     Dosage: 3 DF, WEEKLY
     Route: 048
     Dates: start: 20230801
  4. PROCARBAZINE HYDROCHLORIDE [Suspect]
     Active Substance: PROCARBAZINE HYDROCHLORIDE
     Indication: Astrocytoma
     Dosage: 100 MG, 1X/DAY
     Route: 048
     Dates: start: 20230808, end: 20230823
  5. VIMPAT [Concomitant]
     Active Substance: LACOSAMIDE
     Dosage: UNK
  6. ESCITALOPRAM OXALATE [Concomitant]
     Active Substance: ESCITALOPRAM OXALATE
     Dosage: UNK
  7. VALIUM [Concomitant]
     Active Substance: DIAZEPAM
     Dosage: UNK
  8. KEPPRA [Concomitant]
     Active Substance: LEVETIRACETAM
     Dosage: UNK
  9. FENOFIBRATE [Concomitant]
     Active Substance: FENOFIBRATE
     Dosage: UNK

REACTIONS (5)
  - Hallucination, olfactory [Recovered/Resolved]
  - Hemiparaesthesia [Recovered/Resolved]
  - Confusional state [Recovered/Resolved]
  - Nightmare [Recovered/Resolved]
  - Off label use [Unknown]

NARRATIVE: CASE EVENT DATE: 20230809
